FAERS Safety Report 23047434 (Version 2)
Quarter: 2023Q4

REPORT INFORMATION
  Report Type: Other
  Country: PK (occurrence: None)
  Receive Date: 20231010
  Receipt Date: 20231128
  Transmission Date: 20240110
  Serious: Yes (Other)
  Sender: FDA-Public Use
  Company Number: PK-ROCHE-3374986

PATIENT
  Age: 49 Year
  Sex: Male

DRUGS (1)
  1. AVASTIN [Suspect]
     Active Substance: BEVACIZUMAB
     Indication: Colorectal cancer
     Dosage: FROM 500MG TO 300MG
     Route: 041
     Dates: start: 20230427

REACTIONS (6)
  - Colorectal cancer metastatic [Unknown]
  - Pain [Unknown]
  - Abdominal pain [Unknown]
  - Intestinal obstruction [Unknown]
  - Weight increased [Unknown]
  - Drug intolerance [Unknown]

NARRATIVE: CASE EVENT DATE: 20230608
